FAERS Safety Report 24002056 (Version 1)
Quarter: 2024Q2

REPORT INFORMATION
  Report Type: Spontaneous
  Country: US (occurrence: US)
  Receive Date: 20240622
  Receipt Date: 20240622
  Transmission Date: 20240715
  Serious: Yes (Hospitalization, Other)
  Sender: FDA-Public Use
  Company Number: US-NOVITIUMPHARMA-2024USNVP01069

PATIENT
  Age: 16 Year
  Sex: Female

DRUGS (3)
  1. PRAZOSIN HYDROCHLORIDE [Suspect]
     Active Substance: PRAZOSIN HYDROCHLORIDE
     Indication: Product used for unknown indication
  2. CLONAZEPAM [Concomitant]
     Active Substance: CLONAZEPAM
     Indication: Product used for unknown indication
  3. Amftamine [Concomitant]
     Indication: Product used for unknown indication

REACTIONS (3)
  - Metabolic acidosis [Unknown]
  - Hypotension [Unknown]
  - Depressed level of consciousness [Unknown]
